FAERS Safety Report 24632117 (Version 1)
Quarter: 2024Q4

REPORT INFORMATION
  Report Type: Spontaneous
  Country: CN (occurrence: CN)
  Receive Date: 20241118
  Receipt Date: 20241118
  Transmission Date: 20250115
  Serious: Yes (Hospitalization, Other)
  Sender: BAXTER
  Company Number: None

PATIENT
  Age: 46 Year
  Sex: Female
  Weight: 52 kg

DRUGS (6)
  1. CYCLOPHOSPHAMIDE [Suspect]
     Active Substance: CYCLOPHOSPHAMIDE
     Indication: Chemotherapy
     Dosage: 0.8G, ONE TIME IN ONE DAY, DILUTED WITH 250ML OF 0.9% SODIUM CHLORIDE
     Route: 041
     Dates: start: 20241029, end: 20241029
  2. CYCLOPHOSPHAMIDE [Suspect]
     Active Substance: CYCLOPHOSPHAMIDE
     Indication: Breast cancer female
  3. SODIUM CHLORIDE [Suspect]
     Active Substance: SODIUM CHLORIDE
     Indication: Electrolyte imbalance
     Dosage: (0.9%) 250 ML, ONE TIME IN ONE DAY, USED TO DILUTE 0.8G OF CYCLOPHOSPHAMIDE-INJECTION
     Route: 041
     Dates: start: 20241029, end: 20241029
  4. SODIUM CHLORIDE [Suspect]
     Active Substance: SODIUM CHLORIDE
     Indication: Therapeutic hypothermia
     Dosage: (0.9%) 250 ML, ONE TIME IN ONE DAY, USED TO DILUTE 140MG OF EPIRUBICIN HYDROCHLORIDE-INJECTION
     Route: 041
     Dates: start: 20241029, end: 20241029
  5. EPIRUBICIN HYDROCHLORIDE [Suspect]
     Active Substance: EPIRUBICIN HYDROCHLORIDE
     Indication: Chemotherapy
     Dosage: 140MG, ONE TIME IN ONE DAY, DILUTED WITH 250ML OF 0.9% SODIUM CHLORIDE
     Route: 041
     Dates: start: 20241029, end: 20241029
  6. EPIRUBICIN HYDROCHLORIDE [Suspect]
     Active Substance: EPIRUBICIN HYDROCHLORIDE
     Indication: Breast cancer female

REACTIONS (2)
  - White blood cell count decreased [Unknown]
  - Neutrophil count decreased [Unknown]

NARRATIVE: CASE EVENT DATE: 20241108
